FAERS Safety Report 9755753 (Version 1)
Quarter: 2013Q4

REPORT INFORMATION
  Report Type: Spontaneous
  Country: US (occurrence: US)
  Receive Date: 20131213
  Receipt Date: 20131213
  Transmission Date: 20140711
  Serious: No
  Sender: FDA-Public Use
  Company Number: US-GLAXOSMITHKLINE-A1023513A

PATIENT
  Age: 27 Year
  Sex: Male

DRUGS (2)
  1. EQUATE NTS 21MG, CLEAR [Suspect]
     Indication: EX-TOBACCO USER
     Dates: start: 20130504, end: 20130509
  2. EQUATE NTS 14MG, CLEAR [Suspect]
     Indication: EX-TOBACCO USER
     Dates: start: 20130504, end: 20130509

REACTIONS (4)
  - Hypoaesthesia [Recovered/Resolved]
  - Hypoaesthesia [Recovered/Resolved]
  - Drug ineffective [Recovered/Resolved]
  - Irritability [Recovered/Resolved]
